FAERS Safety Report 12540569 (Version 1)
Quarter: 2016Q3

REPORT INFORMATION
  Report Type: Spontaneous
  Country: US (occurrence: US)
  Receive Date: 20160708
  Receipt Date: 20160708
  Transmission Date: 20161109
  Serious: Yes (Other)
  Sender: FDA-Public Use
  Company Number: US-SA-2016SA122228

PATIENT
  Age: 75 Year
  Sex: Male

DRUGS (1)
  1. MULTAQ [Suspect]
     Active Substance: DRONEDARONE
     Route: 065
     Dates: start: 201510

REACTIONS (2)
  - Parkinson^s disease [Not Recovered/Not Resolved]
  - Dysphagia [Not Recovered/Not Resolved]
